FAERS Safety Report 4285345-0 (Version None)
Quarter: 2004Q1

REPORT INFORMATION
  Report Type: 
  Country: None (occurrence: None)
  Receive Date: 20040203
  Receipt Date: 20040203
  Transmission Date: 20041129
  Serious: Yes (Hospitalization)
  Sender: FDA-Public Use
  Company Number: None

PATIENT
  Sex: Female

DRUGS (9)
  1. HEPARIN [Suspect]
     Indication: CORONARY ARTERY SURGERY
     Dosage: IV
     Route: 042
  2. HEPARIN [Suspect]
     Indication: PULMONARY EMBOLISM
     Dosage: IV
     Route: 042
  3. RANITIDINE [Concomitant]
     Indication: PROPHYLAXIS
  4. METOPROLOL [Concomitant]
  5. DOCUSATE [Concomitant]
  6. AMIODARONE HCL [Concomitant]
  7. VANCOMYCIN [Concomitant]
  8. LEVOFLOXACIN [Concomitant]
  9. HYDROCHLOROTHIAZIDE [Concomitant]

REACTIONS (15)
  - ACTIVATED PARTIAL THROMBOPLASTIN TIME PROLONGED [None]
  - ATRIAL FIBRILLATION [None]
  - ELECTROENCEPHALOGRAM ABNORMAL [None]
  - FEELING HOT [None]
  - HAEMATOMA [None]
  - HAEMOPTYSIS [None]
  - MASS [None]
  - MENTAL STATUS CHANGES [None]
  - PERIPHERAL ISCHAEMIA [None]
  - POST PROCEDURAL HAEMORRHAGE [None]
  - PULMONARY EMBOLISM [None]
  - PULSE ABSENT [None]
  - TRACHEAL HAEMORRHAGE [None]
  - TRACHEAL INJURY [None]
  - WHITE BLOOD CELL COUNT INCREASED [None]
